FAERS Safety Report 9018453 (Version 1)
Quarter: 2013Q1

REPORT INFORMATION
  Report Type: Spontaneous
  Country: US (occurrence: None)
  Receive Date: 20130111
  Receipt Date: 20130111
  Transmission Date: 20140127
  Serious: Yes (Death, Other)
  Sender: FDA-Public Use
  Company Number: None

PATIENT
  Age: 86 Year
  Sex: Male
  Weight: 113 kg

DRUGS (2)
  1. WARFARIN [Suspect]
     Indication: ATRIAL FIBRILLATION
     Dosage: INR 1.97   DAILY  PO
     Route: 048
     Dates: start: 20090101, end: 20121206
  2. FACTOR IX COMPLEX [Suspect]
     Indication: INTERNATIONAL NORMALISED RATIO ABNORMAL
     Dosage: 540 UNITS ONCE IV BOLUS
     Route: 040
     Dates: start: 20121207, end: 20121207

REACTIONS (3)
  - Fall [None]
  - Subdural haematoma [None]
  - Myocardial infarction [None]
